FAERS Safety Report 9614511 (Version 1)
Quarter: 2013Q4

REPORT INFORMATION
  Report Type: Spontaneous
  Country: CA (occurrence: CA)
  Receive Date: 20131011
  Receipt Date: 20131011
  Transmission Date: 20140711
  Serious: Yes (Other)
  Sender: FDA-Public Use
  Company Number: CA-JNJFOC-20131005100

PATIENT
  Age: 15 Year
  Sex: Female

DRUGS (2)
  1. REMICADE [Suspect]
     Indication: COLITIS ULCERATIVE
     Route: 042
  2. PREDNISONE [Suspect]
     Indication: COLITIS ULCERATIVE
     Dosage: WEANED OF PREDNISONE AFTER 3 MONTHS
     Route: 065

REACTIONS (2)
  - Colectomy [Unknown]
  - Psoriasis [Unknown]
